FAERS Safety Report 18439855 (Version 1)
Quarter: 2020Q4

REPORT INFORMATION
  Report Type: Report from Study
  Country: IT (occurrence: IT)
  Receive Date: 20201029
  Receipt Date: 20201029
  Transmission Date: 20210114
  Serious: Yes (Hospitalization)
  Sender: FDA-Public Use
  Company Number: IT-ACCORD-206479

PATIENT
  Age: 79 Year
  Sex: Male

DRUGS (4)
  1. RAMIPRIL. [Suspect]
     Active Substance: RAMIPRIL
     Indication: PRODUCT USED FOR UNKNOWN INDICATION
     Route: 048
     Dates: start: 20200101, end: 20201007
  2. ZYTIGA [Concomitant]
     Active Substance: ABIRATERONE ACETATE
  3. ELIGARD [Concomitant]
     Active Substance: LEUPROLIDE ACETATE
  4. NALTREXONE [Concomitant]
     Active Substance: NALTREXONE

REACTIONS (5)
  - Gait inability [Unknown]
  - Asthenia [Unknown]
  - Dyspnoea [Unknown]
  - Hyponatraemia [Unknown]
  - Malaise [Unknown]

NARRATIVE: CASE EVENT DATE: 20201007
